FAERS Safety Report 9589365 (Version 1)
Quarter: 2013Q4

REPORT INFORMATION
  Report Type: Spontaneous
  Country: US (occurrence: US)
  Receive Date: 20131003
  Receipt Date: 20131003
  Transmission Date: 20140711
  Serious: No
  Sender: FDA-Public Use
  Company Number: US-AMGEN-USASP2012069812

PATIENT
  Age: 59 Year
  Sex: Female
  Weight: 52.15 kg

DRUGS (7)
  1. ENBREL [Suspect]
     Indication: ANKYLOSING SPONDYLITIS
     Dosage: 50 MG, QWK
     Route: 058
  2. BIOTIN [Concomitant]
     Dosage: ONE TAB DAILY
  3. NEURONTIN [Concomitant]
     Dosage: 300 MG, UNK
  4. PREMPRO [Concomitant]
     Dosage: 0.626-2.5
  5. VICODIN [Concomitant]
     Dosage: 5-500 MG
  6. FISH OIL [Concomitant]
     Dosage: UNK
  7. SPIRIVA HANDIHALER [Concomitant]
     Dosage: UNK

REACTIONS (3)
  - Arthralgia [Unknown]
  - Limb discomfort [Unknown]
  - Injection site bruising [Recovering/Resolving]
